FAERS Safety Report 6041048-3 (Version None)
Quarter: 2009Q1

REPORT INFORMATION
  Report Type: 
  Country: None (occurrence: None)
  Receive Date: 20090116
  Receipt Date: 20080905
  Transmission Date: 20090719
  Serious: No
  Sender: FDA-Public Use
  Company Number: US-BRISTOL-MYERS SQUIBB COMPANY-14288468

PATIENT
  Age: 52 Year
  Sex: Female

DRUGS (5)
  1. ABILIFY [Suspect]
     Indication: DEPRESSED MOOD
     Dosage: INITIATED WITH 2MG;INCREASED TO 4MG.
     Route: 048
  2. LIPITOR [Concomitant]
  3. LAMICTAL [Concomitant]
  4. KLONOPIN [Concomitant]
  5. RISPERIDONE [Concomitant]

REACTIONS (1)
  - PARAESTHESIA [None]
